FAERS Safety Report 4830596-7 (Version None)
Quarter: 2005Q4

REPORT INFORMATION
  Report Type: 
  Country: None (occurrence: None)
  Receive Date: 20051117
  Receipt Date: 20050913
  Transmission Date: 20060501
  Serious: Yes (Hospitalization)
  Sender: FDA-Public Use
  Company Number: US-AVENTIS-200516950US

PATIENT
  Age: 55 Year
  Sex: Male
  Weight: 106.8 kg

DRUGS (11)
  1. LOVENOX [Suspect]
     Indication: PULMONARY EMBOLISM
     Route: 058
     Dates: start: 20050901, end: 20050911
  2. PROTONIX [Concomitant]
     Dosage: DOSE: UNK
  3. ZOCOR [Concomitant]
     Dosage: DOSE: UNK
     Dates: end: 20050905
  4. FLOVENT [Concomitant]
     Dosage: DOSE: UNK
  5. FLONASE [Concomitant]
     Dosage: DOSE: UNK
  6. ALBUTEROL [Concomitant]
     Dosage: DOSE: PRN
  7. ALLEGRA [Concomitant]
     Dosage: DOSE: UNK
  8. MOTRIN [Concomitant]
  9. MOTRIN [Concomitant]
  10. MOTRIN [Concomitant]
  11. MOTRIN [Concomitant]
     Dosage: DOSE: 600 (EVERY OTHER DAY)

REACTIONS (7)
  - DYSPNOEA [None]
  - HAEMATOMA [None]
  - INTERNATIONAL NORMALISED RATIO INCREASED [None]
  - MIGRAINE WITH AURA [None]
  - PAIN [None]
  - PERICARDIAL EFFUSION [None]
  - PERICARDITIS [None]
